FAERS Safety Report 7703930-8 (Version None)
Quarter: 2011Q3

REPORT INFORMATION
  Report Type: 
  Country: None (occurrence: None)
  Receive Date: 20110823
  Receipt Date: 20110818
  Transmission Date: 20111222
  Serious: Yes (Hospitalization)
  Sender: FDA-Public Use
  Company Number: FR-ROCHE-786812

PATIENT
  Sex: Male

DRUGS (9)
  1. RAMIPRIL [Concomitant]
  2. ARANESP [Concomitant]
  3. NEORAL [Suspect]
     Route: 048
     Dates: start: 20110301
  4. CELLCEPT [Suspect]
     Route: 048
     Dates: start: 20110301
  5. NEBIVOLOL HCL [Concomitant]
  6. LEVEMIR [Concomitant]
  7. ATORVASTATIN CALCIUM [Concomitant]
  8. NEXIUM [Concomitant]
  9. FERROUS SULFATE TAB [Concomitant]

REACTIONS (23)
  - GRAFT LOSS [None]
  - WEIGHT DECREASED [None]
  - VOMITING [None]
  - BLOOD PRESSURE INCREASED [None]
  - DEHYDRATION [None]
  - VIRAL INFECTION [None]
  - RENAL TUBULAR DISORDER [None]
  - DIARRHOEA [None]
  - ASTHENIA [None]
  - SKIN NEOPLASM EXCISION [None]
  - FURUNCLE [None]
  - HAEMODIALYSIS [None]
  - NEPHROTIC SYNDROME [None]
  - ANAL INFLAMMATION [None]
  - HYPERKERATOSIS [None]
  - KLEBSIELLA TEST POSITIVE [None]
  - OPPORTUNISTIC INFECTION [None]
  - RECTAL HAEMORRHAGE [None]
  - NAUSEA [None]
  - HAEMOGLOBIN DECREASED [None]
  - DIABETIC NEPHROPATHY [None]
  - RENAL FAILURE ACUTE [None]
  - GASTROINTESTINAL TOXICITY [None]
